FAERS Safety Report 7960921-X (Version None)
Quarter: 2011Q4

REPORT INFORMATION
  Report Type: 
  Country: None (occurrence: None)
  Receive Date: 20111201
  Receipt Date: 20111201
  Transmission Date: 20120403
  Serious: Yes (Life-Threatening, Hospitalization)
  Sender: FDA-Public Use
  Company Number: None

PATIENT
  Age: 72 Year
  Sex: Female
  Weight: 44.4525 kg

DRUGS (1)
  1. SPIRONOLACTONE [Suspect]
     Dosage: 100 MG 1 DAILY ORAL
     Route: 048
     Dates: start: 20110826

REACTIONS (3)
  - ELECTROLYTE IMBALANCE [None]
  - CONFUSIONAL STATE [None]
  - AMNESIA [None]
